FAERS Safety Report 10149360 (Version 1)
Quarter: 2014Q2

REPORT INFORMATION
  Report Type: Spontaneous
  Country: US (occurrence: None)
  Receive Date: 20140430
  Receipt Date: 20140430
  Transmission Date: 20141212
  Serious: Yes (Hospitalization)
  Sender: FDA-Public Use
  Company Number: None

PATIENT
  Age: 56 Year
  Sex: Male

DRUGS (3)
  1. CEFAZOLIN [Suspect]
     Indication: PROPHYLAXIS
     Route: 042
     Dates: start: 20131210, end: 20131210
  2. FENTANYL [Concomitant]
  3. PROPOFOL [Concomitant]

REACTIONS (2)
  - Hypotension [None]
  - Haemodynamic instability [None]
